FAERS Safety Report 11020330 (Version 2)
Quarter: 2015Q2

REPORT INFORMATION
  Report Type: Report from Study
  Country: GB (occurrence: GB)
  Receive Date: 20150413
  Receipt Date: 20150417
  Transmission Date: 20150821
  Serious: Yes (Other)
  Sender: FDA-Public Use
  Company Number: GB-AMGEN-2014-2523

PATIENT
  Age: 81 Year
  Sex: Female
  Weight: 55 kg

DRUGS (26)
  1. LOPERAMIDE [Concomitant]
     Active Substance: LOPERAMIDE
     Indication: DIARRHOEA
     Route: 048
     Dates: start: 20140225
  2. ASPIRIN. [Concomitant]
     Active Substance: ASPIRIN
     Indication: EPISTAXIS
     Route: 048
     Dates: start: 20140423
  3. GLYCERYL TRINITRATE [Concomitant]
     Active Substance: NITROGLYCERIN
     Indication: ANGINA PECTORIS
  4. GLYCERYL TRINITRATE [Concomitant]
     Active Substance: NITROGLYCERIN
     Indication: PROPHYLAXIS
  5. SODIUM CHLORIDE 0.9% [Concomitant]
     Active Substance: SODIUM CHLORIDE
     Indication: PREMEDICATION
     Route: 042
     Dates: start: 20140225
  6. GLUCOSE 5% [Concomitant]
     Active Substance: DEXTROSE
     Indication: PREMEDICATION
     Route: 042
     Dates: start: 20140225
  7. GLYCERYL TRINITRATE [Concomitant]
     Active Substance: NITROGLYCERIN
     Route: 060
     Dates: start: 20071015
  8. APREPITANT. [Concomitant]
     Active Substance: APREPITANT
     Route: 048
     Dates: start: 20140730
  9. APREPITANT. [Concomitant]
     Active Substance: APREPITANT
     Indication: NAUSEA
  10. MELPHALAN [Suspect]
     Active Substance: MELPHALAN
     Indication: PLASMA CELL MYELOMA
     Dosage: FREQUENCY: 4 EVERY 42 DAYS; FREQ. TEXT: DAYS 1-4, EVERY 42 DAYS
     Route: 048
     Dates: start: 20140225, end: 20140521
  11. MELPHALAN [Suspect]
     Active Substance: MELPHALAN
     Dosage: FREQUENCY: 4 EVERY 42 DAYS; FREQ. TEXT: DAYS 1-4, EVERY 42 DAYS
     Route: 048
     Dates: start: 20140522, end: 20140523
  12. PREDNISONE. [Suspect]
     Active Substance: PREDNISONE
     Indication: PLASMA CELL MYELOMA
     Dosage: FREQUENCY: 4 EVERY 42 DAYS; FREQ. TEXT: DAYS 1-4, EVERY 42 DAYS
     Route: 048
     Dates: start: 20140225
  13. TIMOLOL [Concomitant]
     Active Substance: TIMOLOL
     Indication: ANGINA PECTORIS
  14. CARFILZOMIB [Suspect]
     Active Substance: CARFILZOMIB
     Indication: PLASMA CELL MYELOMA
     Dosage: FREQ. TEXT: DAYS 1, 2
     Route: 042
     Dates: start: 20140225, end: 20140226
  15. CARFILZOMIB [Suspect]
     Active Substance: CARFILZOMIB
     Dosage: FREQUENCY: 6 EVERY 36 DAYS; FREQ. TEXT: DAYS 8, 9, 22, 23, 29, AND 30
     Route: 042
     Dates: start: 20140304, end: 20140326
  16. MELPHALAN [Suspect]
     Active Substance: MELPHALAN
     Dosage: FREQUENCY: 4 EVERY 42 DAYS; FREQ. TEXT: DAYS 1-4, EVERY 42 DAYS
     Route: 048
     Dates: start: 20140710
  17. TIMOLOL [Concomitant]
     Active Substance: TIMOLOL
     Indication: PROPHYLAXIS
  18. CHLORHEXIDINE/NEOMYCIN CREAM (NASEPTIN) [Concomitant]
     Indication: EPISTAXIS
     Route: 061
     Dates: start: 20140423
  19. ACICLOVIR [Concomitant]
     Active Substance: ACYCLOVIR
     Indication: ANTIVIRAL PROPHYLAXIS
     Route: 048
     Dates: start: 20140317
  20. CARFILZOMIB [Suspect]
     Active Substance: CARFILZOMIB
     Dosage: FREQUENCY: 8 EVERY 42 DAYS; FREQ. TEXT: DAYS 1,2, 8, 9, 22, 23, 29, 30, EVERY 42
     Route: 042
     Dates: start: 20140408, end: 20140911
  21. PREDNISONE. [Suspect]
     Active Substance: PREDNISONE
     Dosage: UNK
     Route: 048
  22. NYSTATIN. [Concomitant]
     Active Substance: NYSTATIN
     Indication: ANTIFUNGAL PROPHYLAXIS
     Route: 048
     Dates: start: 20140225
  23. ONDANSETRON [Concomitant]
     Active Substance: ONDANSETRON
     Indication: PREMEDICATION
     Route: 042
     Dates: start: 20140225
  24. DOMPERIDONE [Concomitant]
     Active Substance: DOMPERIDONE
     Indication: PROPHYLAXIS OF NAUSEA AND VOMITING
     Route: 048
     Dates: start: 20140225
  25. TIMOLOL [Concomitant]
     Active Substance: TIMOLOL
     Route: 048
     Dates: start: 20020508
  26. APREPITANT. [Concomitant]
     Active Substance: APREPITANT
     Indication: VOMITING

REACTIONS (1)
  - Atrial fibrillation [Recovered/Resolved]

NARRATIVE: CASE EVENT DATE: 20141001
